FAERS Safety Report 25380156 (Version 1)
Quarter: 2025Q2

REPORT INFORMATION
  Report Type: Spontaneous
  Country: CN (occurrence: CN)
  Receive Date: 20250530
  Receipt Date: 20250530
  Transmission Date: 20250717
  Serious: Yes (Hospitalization)
  Sender: ELI LILLY AND COMPANY
  Company Number: CN-ELI_LILLY_AND_COMPANY-CN202505019384

PATIENT
  Age: 50 Year
  Sex: Male
  Weight: 67.5 kg

DRUGS (4)
  1. GEMCITABINE HYDROCHLORIDE [Suspect]
     Active Substance: GEMCITABINE HYDROCHLORIDE
     Indication: Bile duct cancer
     Dosage: 2 G, DAILY
     Route: 050
     Dates: start: 20250409, end: 20250409
  2. DURVALUMAB [Suspect]
     Active Substance: DURVALUMAB
     Indication: Bile duct cancer
     Dosage: 1.5 G, DAILY
     Route: 050
     Dates: start: 20250409, end: 20250409
  3. CISPLATIN [Suspect]
     Active Substance: CISPLATIN
     Indication: Bile duct cancer
     Dosage: 0.1 G, DAILY
     Route: 050
     Dates: start: 20250409, end: 20250409
  4. LENVATINIB [Suspect]
     Active Substance: LENVATINIB
     Indication: Bile duct cancer
     Route: 065

REACTIONS (4)
  - Hypokalaemia [Recovering/Resolving]
  - Platelet count decreased [Recovering/Resolving]
  - Myelosuppression [Recovering/Resolving]
  - Vomiting [Recovering/Resolving]

NARRATIVE: CASE EVENT DATE: 20250416
